FAERS Safety Report 11941115 (Version 1)
Quarter: 2016Q1

REPORT INFORMATION
  Report Type: Report from Study
  Country: US (occurrence: US)
  Receive Date: 20160122
  Receipt Date: 20160122
  Transmission Date: 20160526
  Serious: Yes (Other)
  Sender: FDA-Public Use
  Company Number: US-ABBVIE-16K-163-1542814-00

PATIENT
  Age: 61 Year
  Sex: Male

DRUGS (1)
  1. HUMIRA [Suspect]
     Active Substance: ADALIMUMAB
     Indication: PSORIASIS
     Route: 058
     Dates: start: 20151030

REACTIONS (4)
  - Impaired healing [Unknown]
  - Limb injury [Unknown]
  - Fall [Unknown]
  - Dupuytren^s contracture [Recovering/Resolving]

NARRATIVE: CASE EVENT DATE: 20160113
